FAERS Safety Report 26157645 (Version 1)
Quarter: 2025Q4

REPORT INFORMATION
  Report Type: Spontaneous
  Country: GB (occurrence: GB)
  Receive Date: 20251215
  Receipt Date: 20251215
  Transmission Date: 20260117
  Serious: Yes (Other)
  Sender: MYLAN
  Company Number: None

PATIENT
  Age: 57 Year
  Sex: Male
  Weight: 105 kg

DRUGS (4)
  1. FELODIPINE [Suspect]
     Active Substance: FELODIPINE
     Indication: Hypertension
     Dosage: 7.5 MILLIGRAM
     Dates: start: 20240401, end: 20251115
  2. FELODIPINE [Suspect]
     Active Substance: FELODIPINE
     Dosage: 7.5 MILLIGRAM
     Route: 065
     Dates: start: 20240401, end: 20251115
  3. FELODIPINE [Suspect]
     Active Substance: FELODIPINE
     Dosage: 7.5 MILLIGRAM
     Route: 065
     Dates: start: 20240401, end: 20251115
  4. FELODIPINE [Suspect]
     Active Substance: FELODIPINE
     Dosage: 7.5 MILLIGRAM
     Dates: start: 20240401, end: 20251115

REACTIONS (4)
  - Erectile dysfunction [Recovered/Resolved]
  - Joint swelling [Recovered/Resolved]
  - Eczema [Recovered/Resolved]
  - Feeling cold [Recovered/Resolved]

NARRATIVE: CASE EVENT DATE: 20250104
